FAERS Safety Report 8832418 (Version 5)
Quarter: 2013Q1

REPORT INFORMATION
  Report Type: Spontaneous
  Country: US (occurrence: None)
  Receive Date: 20121005
  Receipt Date: 20130205
  Transmission Date: 20140127
  Serious: Yes (Other)
  Sender: FDA-Public Use
  Company Number: US-2012-11440

PATIENT
  Age: 46 Year
  Sex: Female

DRUGS (5)
  1. TOLVAPTAN [Suspect]
     Indication: CONGENITAL CYSTIC KIDNEY DISEASE
     Route: 048
     Dates: start: 20110823, end: 20120920
  2. DOXAZOSIN [Concomitant]
  3. SYNTHROID (LEVOTHYOXINE SODIUM) [Concomitant]
  4. ATENOLOL (ATENOLOL) [Concomitant]
  5. LOTREL (AMLODIPINE MESILATE, BENAZEPRIL HYDROCHLORIDE) [Concomitant]

REACTIONS (4)
  - Blood alkaline phosphatase increased [None]
  - Alanine aminotransferase increased [None]
  - Aspartate aminotransferase increased [None]
  - Gamma-glutamyltransferase increased [None]
